FAERS Safety Report 9046909 (Version 1)
Quarter: 2013Q1

REPORT INFORMATION
  Report Type: Spontaneous
  Country: US (occurrence: None)
  Receive Date: 20130129
  Receipt Date: 20130129
  Transmission Date: 20140127
  Serious: Yes (Disabling)
  Sender: FDA-Public Use
  Company Number: None

PATIENT
  Age: 42 Year
  Sex: Male
  Weight: 79.38 kg

DRUGS (1)
  1. CIPRO  500MG [Suspect]
     Dosage: NORMAL DOSAGE  -  7 DAYS   TWICE A DAY   PO?08/01/2000  --  08/07/2000
     Route: 048
     Dates: start: 20000801, end: 20000807

REACTIONS (6)
  - Joint injury [None]
  - Tendon injury [None]
  - Arthralgia [None]
  - Tendon pain [None]
  - Ligament injury [None]
  - Ligament pain [None]
